FAERS Safety Report 6903458-9 (Version None)
Quarter: 2010Q3

REPORT INFORMATION
  Report Type: 
  Country: None (occurrence: None)
  Receive Date: 20100803
  Receipt Date: 20081009
  Transmission Date: 20110219
  Serious: No
  Sender: FDA-Public Use
  Company Number: US-PFIZER INC-2008086800

PATIENT
  Sex: Female

DRUGS (4)
  1. LYRICA [Suspect]
     Indication: FIBROMYALGIA
     Dates: start: 20080101, end: 20080101
  2. CYMBALTA [Suspect]
     Indication: NEUROPATHY PERIPHERAL
     Dates: start: 20080101
  3. VITAMIN TAB [Concomitant]
  4. ALEVE (CAPLET) [Concomitant]

REACTIONS (11)
  - BLOOD PRESSURE ABNORMAL [None]
  - DIZZINESS [None]
  - DRUG INEFFECTIVE [None]
  - DRY MOUTH [None]
  - GAIT DISTURBANCE [None]
  - MALAISE [None]
  - NEUROPATHY PERIPHERAL [None]
  - OSTEOARTHRITIS [None]
  - THYROID DISORDER [None]
  - VISION BLURRED [None]
  - WEIGHT INCREASED [None]
